FAERS Safety Report 7438224-1 (Version None)
Quarter: 2011Q2

REPORT INFORMATION
  Report Type: 
  Country: None (occurrence: None)
  Receive Date: 20110421
  Receipt Date: 20110421
  Transmission Date: 20111010
  Serious: No
  Sender: FDA-Public Use
  Company Number: None

PATIENT
  Sex: Female
  Weight: 92.5 kg

DRUGS (1)
  1. ENBREL [Suspect]
     Indication: RHEUMATOID ARTHRITIS
     Dosage: 50 MG QW SQ
     Route: 058
     Dates: start: 20110224, end: 20110414

REACTIONS (7)
  - DERMATITIS ACNEIFORM [None]
  - AGGRESSION [None]
  - PRURITUS [None]
  - URTICARIA [None]
  - HYPERSENSITIVITY [None]
  - MOOD SWINGS [None]
  - INJECTION SITE REACTION [None]
